FAERS Safety Report 7790425-9 (Version None)
Quarter: 2011Q3

REPORT INFORMATION
  Report Type: 
  Country: None (occurrence: None)
  Receive Date: 20110930
  Receipt Date: 20110928
  Transmission Date: 20111222
  Serious: Yes (Other)
  Sender: FDA-Public Use
  Company Number: US-PFIZER INC-2009179978

PATIENT
  Sex: Female
  Weight: 73.9 kg

DRUGS (18)
  1. SOMA [Concomitant]
     Indication: MUSCULOSKELETAL PAIN
     Dosage: 350 MG, 4X/DAY
     Route: 048
  2. SOMA [Concomitant]
     Indication: JOINT INJURY
  3. ADVAIR DISKUS 100/50 [Concomitant]
     Indication: LUNG DISORDER
     Dosage: UNK
     Route: 055
  4. SYMBICORT [Concomitant]
     Dosage: UNK
  5. PROAIR HFA [Concomitant]
     Dosage: UNK
  6. LORTAB [Concomitant]
     Indication: JOINT INJURY
     Dosage: UNK
  7. CHANTIX [Suspect]
     Indication: SMOKING CESSATION THERAPY
     Dosage: 0.5 MG, 1X/DAY
     Route: 047
     Dates: start: 20081101, end: 20080101
  8. CHANTIX [Suspect]
     Dosage: 1 MG, 2X/DAY
     Route: 048
     Dates: start: 20080101, end: 20080101
  9. SPIRIVA [Concomitant]
     Indication: LUNG DISORDER
     Dosage: UNK, DAILY
     Route: 055
  10. ACETYLSALICYLIC ACID [Concomitant]
     Dosage: 81 MG, UNK
  11. VITAMIN E [Concomitant]
     Dosage: UNK
  12. SIMVASTATIN [Concomitant]
     Dosage: UNK
  13. FISH OIL [Concomitant]
     Dosage: UNK
  14. NEXIUM [Concomitant]
     Dosage: UNK
  15. COMBIVENT [Concomitant]
     Indication: LUNG DISORDER
     Dosage: UNK,  2 PUFFS 4 TIMES A DAY
     Route: 055
  16. VITAMIN A [Concomitant]
     Dosage: UNK
  17. VENTOLIN HFA [Concomitant]
     Indication: LUNG DISORDER
     Dosage: 2 PUFFS 4 TIMES A DAY
     Route: 055
  18. ATIVAN [Concomitant]
     Dosage: UNK

REACTIONS (14)
  - DRUG INEFFECTIVE [None]
  - ABNORMAL DREAMS [None]
  - INTERSTITIAL LUNG DISEASE [None]
  - DYSPNOEA [None]
  - VOMITING [None]
  - COUGH [None]
  - FEELING ABNORMAL [None]
  - ABNORMAL BEHAVIOUR [None]
  - DYSGEUSIA [None]
  - NAUSEA [None]
  - MALAISE [None]
  - STRESS [None]
  - DYSPEPSIA [None]
  - TOBACCO USER [None]
